FAERS Safety Report 6193097-2 (Version None)
Quarter: 2009Q2

REPORT INFORMATION
  Report Type: 
  Country: None (occurrence: None)
  Receive Date: 20090518
  Receipt Date: 20090514
  Transmission Date: 20091009
  Serious: Yes (Hospitalization)
  Sender: FDA-Public Use
  Company Number: US-ASTRAZENECA-2009UW08534

PATIENT
  Age: 31014 Day
  Sex: Male
  Weight: 83.9 kg

DRUGS (10)
  1. SEROQUEL [Suspect]
     Indication: BIPOLAR DISORDER
     Route: 048
     Dates: start: 20090106, end: 20090107
  2. SEROQUEL [Suspect]
     Indication: MANIA
     Route: 048
     Dates: start: 20090106, end: 20090107
  3. CELEXA [Concomitant]
     Indication: DEPRESSION
  4. NAMENDA [Concomitant]
  5. HALDOL [Concomitant]
  6. GLIPIZIDE [Concomitant]
     Indication: DIABETES MELLITUS
  7. LISINOPRIL [Concomitant]
     Indication: HYPERTENSION
     Route: 048
  8. METOPROLOL [Concomitant]
  9. PRAVASTATIN [Concomitant]
  10. FLOMAX [Concomitant]

REACTIONS (3)
  - HYPOTENSION [None]
  - SEDATION [None]
  - UNRESPONSIVE TO STIMULI [None]
